FAERS Safety Report 5518050-0 (Version None)
Quarter: 2007Q4

REPORT INFORMATION
  Report Type: 
  Country: None (occurrence: None)
  Receive Date: 20071115
  Receipt Date: 20071112
  Transmission Date: 20080405
  Serious: Yes (Hospitalization)
  Sender: FDA-Public Use
  Company Number: US-BRISTOL-MYERS SQUIBB COMPANY-13766803

PATIENT
  Age: 59 Year
  Sex: Female
  Weight: 95 kg

DRUGS (18)
  1. IRBESARTAN [Suspect]
     Indication: HYPERTENSION
     Dosage: STOPPED ON 22-APR-07, RESTARTED 2-MAY-07
     Dates: start: 20041028
  2. WARFARIN SODIUM [Suspect]
     Indication: PROPHYLAXIS
     Dates: start: 20041028
  3. BLINDED: PLACEBO [Suspect]
     Indication: HYPERTENSION
     Dosage: STOPPED ON 22-APR-07, RESTARTED 2-MAY-07
     Dates: start: 20041028
  4. LASIX [Suspect]
  5. CIPROFLOXACIN [Concomitant]
  6. AMLODIPINE [Concomitant]
  7. LISINOPRIL [Concomitant]
  8. METFORMIN HCL [Concomitant]
  9. K-DUR 10 [Concomitant]
  10. ATENOLOL [Concomitant]
  11. AVELOX [Concomitant]
  12. VALTREX [Concomitant]
  13. RANITIDINE [Concomitant]
  14. LYRICA [Concomitant]
  15. SYNTHROID [Concomitant]
  16. NORVASC [Concomitant]
  17. ALLOPURINOL [Concomitant]
  18. OS-CAL [Concomitant]

REACTIONS (1)
  - RENAL FAILURE [None]
